FAERS Safety Report 14838803 (Version 2)
Quarter: 2018Q2

REPORT INFORMATION
  Report Type: Spontaneous
  Country: JP (occurrence: JP)
  Receive Date: 20180502
  Receipt Date: 20180629
  Transmission Date: 20180711
  Serious: Yes (Death, Hospitalization)
  Sender: FDA-Public Use
  Company Number: JP-JNJFOC-20180500240

PATIENT
  Age: 68 Year
  Sex: Female

DRUGS (8)
  1. TRAMAL OD [Suspect]
     Active Substance: TRAMADOL
     Indication: RHEUMATOID ARTHRITIS
     Route: 048
     Dates: start: 20170127
  2. CALONAL [Concomitant]
     Active Substance: ACETAMINOPHEN
     Indication: RHEUMATOID ARTHRITIS
     Route: 065
     Dates: start: 20170127
  3. TRAMAL OD [Suspect]
     Active Substance: TRAMADOL
     Indication: PAIN
     Route: 048
  4. TRAMAL OD [Suspect]
     Active Substance: TRAMADOL
     Indication: PAIN
     Route: 048
     Dates: start: 20170127
  5. TRAMAL OD [Suspect]
     Active Substance: TRAMADOL
     Indication: RHEUMATOID ARTHRITIS
     Route: 048
  6. PREDNISOLONE. [Suspect]
     Active Substance: PREDNISOLONE
     Indication: RHEUMATOID ARTHRITIS
     Route: 048
     Dates: start: 20061011
  7. VOTRIENT [Concomitant]
     Active Substance: PAZOPANIB HYDROCHLORIDE
     Indication: URINARY BLADDER SARCOMA
     Route: 065
     Dates: start: 20170309
  8. ORENCIA [Suspect]
     Active Substance: ABATACEPT
     Indication: RHEUMATOID ARTHRITIS
     Route: 065
     Dates: start: 20160122, end: 20170127

REACTIONS (1)
  - Urinary bladder sarcoma [Fatal]
